FAERS Safety Report 9959127 (Version 2)
Quarter: 2014Q1

REPORT INFORMATION
  Report Type: Spontaneous
  Country: FR (occurrence: None)
  Receive Date: 20140228
  Receipt Date: 20140318
  Transmission Date: 20141002
  Serious: Yes (Hospitalization)
  Sender: FDA-Public Use
  Company Number: AUR-APL-2014-02018

PATIENT
  Age: 81 Year
  Sex: Male
  Weight: 79 kg

DRUGS (4)
  1. RAMIPRIL [Suspect]
     Indication: ARRHYTHMIA
     Route: 048
     Dates: end: 20131027
  2. ATACAND (CANDESARTAN CILEXETIL) [Suspect]
     Indication: ARRHYTHMIA
     Dates: end: 20131027
  3. AMIODARONE (AMIODARONE) [Concomitant]
  4. TEMERIT (NEBEVIOLOL HYDROCHLORIDE) [Concomitant]

REACTIONS (3)
  - Confusional state [None]
  - Hyponatraemia [None]
  - Drug interaction [None]
